FAERS Safety Report 4401803-X (Version None)
Quarter: 2004Q3

REPORT INFORMATION
  Report Type: 
  Country: None (occurrence: None)
  Receive Date: 20040720
  Receipt Date: 20040707
  Transmission Date: 20050211
  Serious: Yes (Hospitalization)
  Sender: FDA-Public Use
  Company Number: SK-ROCHE-373557

PATIENT
  Sex: Female
  Weight: 75 kg

DRUGS (2)
  1. PEG-INTERFERON ALFA 2A (RO 25-8310) [Suspect]
     Indication: HEPATITIS C
     Route: 065
     Dates: start: 20040301
  2. RIBAVIRIN [Suspect]
     Indication: HEPATITIS C
     Route: 065
     Dates: start: 20040301

REACTIONS (8)
  - ANAEMIA [None]
  - AUTOIMMUNE DISORDER [None]
  - HAEMATURIA [None]
  - HYPERPYREXIA [None]
  - MICROCYTIC ANAEMIA [None]
  - NEPHRITIS [None]
  - NEUTROPENIA [None]
  - THROMBOCYTOPENIA [None]
